FAERS Safety Report 24434963 (Version 2)
Quarter: 2025Q1

REPORT INFORMATION
  Report Type: Spontaneous
  Country: JP (occurrence: JP)
  Receive Date: 20241014
  Receipt Date: 20250117
  Transmission Date: 20250408
  Serious: Yes (Life-Threatening, Other)
  Sender: MERCK
  Company Number: JP-MSD-2410JPN001083J

PATIENT
  Age: 81 Year
  Sex: Male

DRUGS (10)
  1. KEYTRUDA [Suspect]
     Active Substance: PEMBROLIZUMAB
     Indication: Renal cancer
     Route: 041
     Dates: start: 20240902, end: 20240902
  2. LENVATINIB MESYLATE [Suspect]
     Active Substance: LENVATINIB MESYLATE
     Indication: Renal cancer
     Dosage: 14 MILLIGRAM, QD
     Route: 048
     Dates: start: 20240810, end: 20240905
  3. LENVATINIB MESYLATE [Suspect]
     Active Substance: LENVATINIB MESYLATE
     Route: 048
     Dates: start: 20240910, end: 20240922
  4. TAMSULOSIN HYDROCHLORIDE [Concomitant]
     Active Substance: TAMSULOSIN HYDROCHLORIDE
     Route: 048
  5. LEVOTHYROXINE SODIUM [Concomitant]
     Active Substance: LEVOTHYROXINE SODIUM
     Route: 048
  6. LEVOTHYROXINE SODIUM [Concomitant]
     Active Substance: LEVOTHYROXINE SODIUM
     Route: 065
  7. CORTRIL [Concomitant]
     Active Substance: HYDROCORTISONE
     Route: 048
  8. CILNIDIPINE [Concomitant]
     Active Substance: CILNIDIPINE
     Indication: Hypertension
     Route: 048
     Dates: start: 2024, end: 20240917
  9. CILNIDIPINE [Concomitant]
     Active Substance: CILNIDIPINE
     Dosage: 20 MILLIGRAM, QD
     Route: 048
     Dates: start: 20240918
  10. OLMESARTAN MEDOXOMIL [Concomitant]
     Active Substance: OLMESARTAN MEDOXOMIL
     Indication: Hypertension
     Route: 048
     Dates: start: 2024

REACTIONS (1)
  - Encephalitis autoimmune [Not Recovered/Not Resolved]

NARRATIVE: CASE EVENT DATE: 20240902
